FAERS Safety Report 11022811 (Version 1)
Quarter: 2015Q2

REPORT INFORMATION
  Report Type: Spontaneous
  Country: DE (occurrence: DE)
  Receive Date: 20150413
  Receipt Date: 20150413
  Transmission Date: 20150821
  Serious: Yes (Hospitalization)
  Sender: FDA-Public Use
  Company Number: US-ASTRAZENECA-2015SE33759

PATIENT
  Age: 67 Day
  Sex: Female
  Weight: 3.4 kg

DRUGS (4)
  1. FERRUM HAUSMANN [Concomitant]
     Active Substance: FERROUS FUMARATE
     Indication: PRODUCT USED FOR UNKNOWN INDICATION
     Dosage: 3-0-4
     Route: 048
     Dates: start: 201502
  2. COLECALCIFEROL [Concomitant]
     Active Substance: CHOLECALCIFEROL
     Indication: PRODUCT USED FOR UNKNOWN INDICATION
  3. SYNAGIS [Suspect]
     Active Substance: PALIVIZUMAB
     Indication: ANTIVIRAL PROPHYLAXIS
     Dosage: FIRST SYNAGIS INJECTION, MONTHLY
     Route: 030
     Dates: start: 20150120, end: 20150120
  4. FERRUM HAUSMANN [Concomitant]
     Active Substance: FERROUS FUMARATE
     Indication: PRODUCT USED FOR UNKNOWN INDICATION
     Dosage: 2-3 DROPS
     Route: 048
     Dates: end: 201502

REACTIONS (7)
  - Respiratory syncytial virus bronchiolitis [Unknown]
  - Rhinitis [Unknown]
  - Respiratory failure [Recovered/Resolved]
  - Bradycardia [Recovered/Resolved]
  - Bacterial infection [Recovering/Resolving]
  - Oxygen saturation decreased [Recovered/Resolved]
  - Poor sucking reflex [Recovered/Resolved]

NARRATIVE: CASE EVENT DATE: 20150219
